FAERS Safety Report 6158086-2 (Version None)
Quarter: 2009Q2

REPORT INFORMATION
  Report Type: 
  Country: None (occurrence: None)
  Receive Date: 20090417
  Receipt Date: 20090409
  Transmission Date: 20091009
  Serious: Yes (Death)
  Sender: FDA-Public Use
  Company Number: PHHY2009JP11211

PATIENT
  Weight: 56 kg

DRUGS (10)
  1. DIOVAN [Suspect]
     Indication: HYPERTENSION
     Dosage: 80 MG, QD
     Route: 048
     Dates: start: 20071001, end: 20081119
  2. ASPIRIN [Concomitant]
     Dosage: 100 MG
     Route: 048
     Dates: start: 20071001, end: 20081119
  3. GASTER D [Concomitant]
     Dosage: 20 MG
     Route: 048
     Dates: start: 20071001, end: 20081119
  4. ACTOS [Concomitant]
     Dosage: 15 MG
     Route: 048
     Dates: start: 20071012, end: 20081119
  5. CYANOCOBALAMIN [Concomitant]
     Dosage: 1500 UG
     Route: 048
     Dates: start: 20070815, end: 20081119
  6. AMARYL [Concomitant]
     Dosage: 2 MG
     Route: 048
     Dates: start: 20070815, end: 20081119
  7. FLUTICASONE PROPIONATE W/SALMETEROL XINAFOATE [Concomitant]
     Dosage: 2 DF
     Dates: start: 20080227, end: 20081119
  8. MUCODYNE [Concomitant]
     Dosage: 1500 MG
     Route: 048
     Dates: start: 20071031, end: 20081119
  9. ONON [Concomitant]
     Dosage: 225 MG
     Route: 048
     Dates: start: 20080625, end: 20081119
  10. THEO-DUR [Concomitant]
     Dosage: 200 MG
     Route: 048
     Dates: start: 20071012, end: 20081119

REACTIONS (2)
  - ADVERSE EVENT [None]
  - DEATH [None]
